FAERS Safety Report 5248533-2 (Version None)
Quarter: 2007Q1

REPORT INFORMATION
  Report Type: 
  Country: None (occurrence: None)
  Receive Date: 20070227
  Receipt Date: 20070215
  Transmission Date: 20070707
  Serious: Yes (Other)
  Sender: FDA-Public Use
  Company Number: GB-PFIZER INC-2007013163

PATIENT
  Age: 68 Year
  Sex: Female

DRUGS (2)
  1. DOXYCYCLINE [Suspect]
     Indication: ROSACEA
     Route: 048
     Dates: start: 20060620, end: 20060622
  2. EZETIMIBE [Interacting]
     Indication: BLOOD CHOLESTEROL INCREASED
     Route: 048

REACTIONS (2)
  - DRUG INTERACTION [None]
  - ERYTHEMA NODOSUM [None]
